FAERS Safety Report 13193455 (Version 1)
Quarter: 2017Q1

REPORT INFORMATION
  Report Type: Report from Study
  Country: CA (occurrence: CA)
  Receive Date: 20170207
  Receipt Date: 20170207
  Transmission Date: 20170428
  Serious: Yes (Hospitalization)
  Sender: FDA-Public Use
  Company Number: CA-JNJFOC-20170200135

PATIENT
  Age: 45 Year
  Sex: Female
  Weight: 116 kg

DRUGS (2)
  1. REMICADE [Suspect]
     Active Substance: INFLIXIMAB
     Indication: ANKYLOSING SPONDYLITIS
     Route: 042
     Dates: start: 20170131
  2. REMICADE [Suspect]
     Active Substance: INFLIXIMAB
     Indication: ANKYLOSING SPONDYLITIS
     Route: 042
     Dates: start: 2015

REACTIONS (9)
  - Respiratory rate increased [Recovering/Resolving]
  - Speech disorder [Unknown]
  - Infusion related reaction [Not Recovered/Not Resolved]
  - Bronchitis [Unknown]
  - Blood pressure systolic increased [Recovered/Resolved]
  - Loss of consciousness [Not Recovered/Not Resolved]
  - Hypopnoea [Recovering/Resolving]
  - Malaise [Unknown]
  - Dyspnoea [Not Recovered/Not Resolved]

NARRATIVE: CASE EVENT DATE: 20170131
